FAERS Safety Report 7155071-9 (Version None)
Quarter: 2010Q4

REPORT INFORMATION
  Report Type: 
  Country: None (occurrence: None)
  Receive Date: 20101214
  Receipt Date: 20100125
  Transmission Date: 20110411
  Serious: Yes (Other)
  Sender: FDA-Public Use
  Company Number: US-AMGEN-QUU357579

PATIENT

DRUGS (14)
  1. ENBREL [Suspect]
     Indication: PRODUCT USED FOR UNKNOWN INDICATION
     Dosage: 50 MG, UNK
  2. LOSARTAN POTASSIUM [Concomitant]
     Dosage: UNK UNK, UNK
  3. LANSOPRAZOLE [Concomitant]
     Dosage: UNK UNK, UNK
  4. METOPROLOL [Concomitant]
     Dosage: UNK UNK, UNK
  5. DIPHENHYDRAMINE HYDROCHLORIDE [Concomitant]
     Dosage: UNK UNK, PRN
  6. MINOXIDIL [Concomitant]
     Dosage: UNK UNK, UNK
  7. PANCREATIN [Concomitant]
     Dosage: UNK UNK, UNK
  8. FENTANYL [Concomitant]
     Dosage: UNK UNK, UNK
  9. ACETAMINOPHEN AND OXYCODONE HCL [Concomitant]
     Dosage: UNK UNK, UNK
  10. ONDANSETRON HYDROCHLORIDE [Concomitant]
     Dosage: UNK UNK, UNK
  11. LOMOTIL [Concomitant]
     Dosage: UNK UNK, UNK
  12. PIMECROLIMUS [Concomitant]
     Dosage: UNK UNK, UNK
  13. CLINDAMYCIN HYDROCHLORIDE [Concomitant]
     Dosage: UNK UNK, UNK
     Route: 061
  14. TRAMADOL [Concomitant]
     Dosage: UNK UNK, UNK

REACTIONS (1)
  - PANCREATIC CARCINOMA [None]
